FAERS Safety Report 8870440 (Version 2)
Quarter: 2012Q4

REPORT INFORMATION
  Report Type: 
  Country: US (occurrence: US)
  Receive Date: 20121029
  Receipt Date: 20121214
  Transmission Date: 20130627
  Serious: Yes (Other)
  Sender: FDA-Public Use
  Company Number: US-AMGEN-USASP2012067754

PATIENT
  Age: 56 Year
  Sex: Female

DRUGS (3)
  1. ENBREL [Suspect]
     Indication: PSORIATIC ARTHROPATHY
     Dosage: 50 mg, qwk
     Dates: start: 2009
  2. HUMIRA [Concomitant]
     Dosage: UNK
     Dates: start: 2010, end: 2011
  3. REMICADE [Concomitant]
     Dosage: UNK
     Dates: start: 2011, end: 2012

REACTIONS (9)
  - Burns second degree [Recovered/Resolved]
  - Skin infection [Recovered/Resolved]
  - Laser therapy [Unknown]
  - Inflammatory marker increased [Unknown]
  - Arthralgia [Unknown]
  - Carpal tunnel syndrome [Not Recovered/Not Resolved]
  - Finger deformity [Not Recovered/Not Resolved]
  - Psoriasis [Not Recovered/Not Resolved]
  - Injection site pain [Not Recovered/Not Resolved]
